FAERS Safety Report 4510126-X (Version None)
Quarter: 2004Q4

REPORT INFORMATION
  Report Type: 
  Country: None (occurrence: None)
  Receive Date: 20041124
  Receipt Date: 20041117
  Transmission Date: 20050328
  Serious: Yes (Other)
  Sender: FDA-Public Use
  Company Number: US-JNJFOC-20041102795

PATIENT
  Sex: Male
  Weight: 103.42 kg

DRUGS (3)
  1. REMICADE [Suspect]
     Dosage: TOTAL OF 15 INFUSIONS
     Route: 042
  2. REMICADE [Suspect]
     Route: 042
  3. LEFLUNOMIDE [Concomitant]

REACTIONS (2)
  - NON-HODGKIN'S LYMPHOMA STAGE IV [None]
  - PLATELET COUNT DECREASED [None]
